FAERS Safety Report 15380212 (Version 1)
Quarter: 2018Q3

REPORT INFORMATION
  Report Type: Report from Study
  Country: BD (occurrence: BD)
  Receive Date: 20180913
  Receipt Date: 20180913
  Transmission Date: 20181010
  Serious: Yes (Other)
  Sender: FDA-Public Use
  Company Number: BD-SA-2018SA246744

PATIENT
  Age: 59 Year
  Sex: Female

DRUGS (1)
  1. INSULIN GLARGINE [Suspect]
     Active Substance: INSULIN GLARGINE
     Dosage: UNK
     Dates: start: 20150617

REACTIONS (12)
  - Spinal cord disorder [Unknown]
  - Myalgia [Unknown]
  - Gait inability [Unknown]
  - Abdominal pain upper [Unknown]
  - Eye pain [Unknown]
  - Pain in extremity [Unknown]
  - Peripheral swelling [Unknown]
  - Cardiac disorder [Unknown]
  - Blood creatinine increased [Unknown]
  - Renal disorder [Unknown]
  - Obesity [Unknown]
  - Tremor [Unknown]
